FAERS Safety Report 7743492-2 (Version None)
Quarter: 2011Q3

REPORT INFORMATION
  Report Type: 
  Country: None (occurrence: None)
  Receive Date: 20110912
  Receipt Date: 20100915
  Transmission Date: 20111222
  Serious: No
  Sender: FDA-Public Use
  Company Number: US-ABBOTT-10P-163-0671742-00

PATIENT
  Age: 21 Year
  Sex: Male

DRUGS (1)
  1. DEPAKOTE [Suspect]
     Indication: CONVULSION
     Dosage: UNKNOWN

REACTIONS (4)
  - ORAL DISORDER [None]
  - BLOOD AMYLASE INCREASED [None]
  - STOMATITIS [None]
  - ABDOMINAL PAIN [None]
